FAERS Safety Report 6077212-7 (Version None)
Quarter: 2009Q1

REPORT INFORMATION
  Report Type: 
  Country: None (occurrence: None)
  Receive Date: 20090211
  Receipt Date: 20090203
  Transmission Date: 20090719
  Serious: Yes (Death)
  Sender: FDA-Public Use
  Company Number: 1000003860

PATIENT
  Age: 70 Year
  Sex: Female

DRUGS (3)
  1. ESCITALOPRAM [Suspect]
     Indication: DEPRESSION
     Dosage: 5 DOSAGE FORMS (5 DOSAGE FORMS, 1 IN 1 D), ORAL
     Route: 048
     Dates: start: 20081201, end: 20081203
  2. BUSCAPINA (10 MILLIGRAM, TABLETS) [Concomitant]
  3. MORPHINE HYDROCHLORIDE(TABLETS) [Concomitant]

REACTIONS (6)
  - CONDITION AGGRAVATED [None]
  - GENERAL PHYSICAL HEALTH DETERIORATION [None]
  - HYPONATRAEMIA [None]
  - LEUKOCYTOSIS [None]
  - RESPIRATORY DISTRESS [None]
  - SOMNOLENCE [None]
